FAERS Safety Report 18439239 (Version 4)
Quarter: 2021Q3

REPORT INFORMATION
  Report Type: Spontaneous
  Country: US (occurrence: US)
  Receive Date: 20201029
  Receipt Date: 20210820
  Transmission Date: 20211014
  Serious: No
  Sender: FDA-Public Use
  Company Number: US-AKCEA THERAPEUTICS-2020IS001432

PATIENT
  Age: 85 Year
  Sex: Male

DRUGS (5)
  1. TEGSEDI [Suspect]
     Active Substance: INOTERSEN SODIUM
     Indication: HEREDITARY NEUROPATHIC AMYLOIDOSIS
     Route: 058
     Dates: start: 20190711, end: 202010
  2. ISSD (INTEGRATED SYRINGE SAFETY DEVICE) [Suspect]
     Active Substance: DEVICE
  3. TEGSEDI [Suspect]
     Active Substance: INOTERSEN SODIUM
     Route: 058
     Dates: start: 20191017
  4. TEGSEDI [Suspect]
     Active Substance: INOTERSEN SODIUM
     Indication: POLYNEUROPATHY
     Route: 058
     Dates: start: 20190711, end: 202010
  5. TEGSEDI [Suspect]
     Active Substance: INOTERSEN SODIUM
     Route: 058

REACTIONS (12)
  - Urine protein/creatinine ratio increased [Unknown]
  - Laboratory test interference [Unknown]
  - Blood creatinine increased [Not Recovered/Not Resolved]
  - Platelet count decreased [Not Recovered/Not Resolved]
  - Protein urine present [Unknown]
  - Urine abnormality [Not Recovered/Not Resolved]
  - Glomerular filtration rate decreased [Not Recovered/Not Resolved]
  - Urine leukocyte esterase positive [Unknown]
  - Urinary casts [Unknown]
  - White blood cells urine positive [Unknown]
  - Bacterial test positive [Unknown]
  - Urine analysis abnormal [Unknown]

NARRATIVE: CASE EVENT DATE: 20200928
